FAERS Safety Report 10369153 (Version 1)
Quarter: 2014Q1

REPORT INFORMATION
  Report Type: Spontaneous
  Country: US (occurrence: None)
  Receive Date: 20140306
  Receipt Date: 20140306
  Transmission Date: 20141002
  Serious: Yes (Other)
  Sender: FDA-Public Use
  Company Number: 163-21880-13033050

PATIENT
  Age: 73 Year
  Sex: Female

DRUGS (3)
  1. REVLIMID [Suspect]
     Indication: MYELODYSPLASTIC SYNDROME
     Route: 048
     Dates: start: 20130315, end: 20130322
  2. ALLOPURINOL (ALLOPURINOL) (UNKNOWN) [Concomitant]
  3. FONDAPARINUX (FONDAPARINUX) (UNKNOWN) [Concomitant]

REACTIONS (4)
  - Pancytopenia [None]
  - Skin irritation [None]
  - Thrombocytopenia [None]
  - Pruritus [None]
